FAERS Safety Report 7069324-6 (Version None)
Quarter: 2010Q4

REPORT INFORMATION
  Report Type: 
  Country: None (occurrence: None)
  Receive Date: 20101028
  Receipt Date: 20101026
  Transmission Date: 20110411
  Serious: Yes (Hospitalization, Other)
  Sender: FDA-Public Use
  Company Number: HQWYE659630AUG04

PATIENT
  Sex: Female

DRUGS (3)
  1. PREMPRO [Suspect]
     Dosage: UNSPECIFIED DOSAGE
     Route: 048
     Dates: start: 19960723, end: 20010901
  2. PREMARIN [Suspect]
     Indication: HORMONE REPLACEMENT THERAPY
     Dosage: 0.625MG
     Route: 048
     Dates: start: 19940531, end: 19950505
  3. PROVERA [Suspect]
     Indication: HORMONE REPLACEMENT THERAPY
     Dosage: 10MG
     Route: 048
     Dates: start: 19940531, end: 19950505

REACTIONS (1)
  - BREAST CANCER METASTATIC [None]
